FAERS Safety Report 5141407-7 (Version None)
Quarter: 2006Q4

REPORT INFORMATION
  Report Type: 
  Country: None (occurrence: None)
  Receive Date: 20061101
  Receipt Date: 20061027
  Transmission Date: 20070319
  Serious: Yes (Other)
  Sender: FDA-Public Use
  Company Number: FR-GLAXOSMITHKLINE-B0444614A

PATIENT
  Age: 37 Year
  Sex: Female

DRUGS (3)
  1. VENTOLIN [Suspect]
     Indication: ASTHMA
     Route: 055
  2. CETIRIZINE HCL [Concomitant]
  3. ACETAMINOPHEN [Concomitant]

REACTIONS (1)
  - ERYTHEMA MULTIFORME [None]
